FAERS Safety Report 5079203-1 (Version None)
Quarter: 2006Q3

REPORT INFORMATION
  Report Type: 
  Country: None (occurrence: None)
  Receive Date: 20060808
  Receipt Date: 20060724
  Transmission Date: 20061208
  Serious: Yes (Death)
  Sender: FDA-Public Use
  Company Number: 8016267

PATIENT
  Age: 11 Year
  Sex: Female

DRUGS (2)
  1. TUSSIONEX [Suspect]
     Indication: COUGH
     Dosage: ONCE PO
     Route: 048
     Dates: start: 20060224, end: 20060224
  2. ZITHROMAX [Suspect]
     Dosage: PO
     Route: 048
     Dates: start: 20060224, end: 20060224

REACTIONS (7)
  - ARRHYTHMIA [None]
  - CARDIAC DISORDER [None]
  - HYPERTROPHY [None]
  - PERICARDITIS [None]
  - PULMONARY CONGESTION [None]
  - PULMONARY OEDEMA [None]
  - VIRAL INFECTION [None]
